FAERS Safety Report 9770969 (Version 1)
Quarter: 2013Q4

REPORT INFORMATION
  Report Type: Spontaneous
  Country: US (occurrence: US)
  Receive Date: 20131218
  Receipt Date: 20131218
  Transmission Date: 20140711
  Serious: No
  Sender: FDA-Public Use
  Company Number: US-MYLANLABS-2012S1026051

PATIENT
  Sex: Male

DRUGS (1)
  1. LANSOPRAZOLE DELAYED-RELEASE CAPSULES, USP [Suspect]
     Route: 048
     Dates: start: 201009

REACTIONS (1)
  - Drug effect decreased [Not Recovered/Not Resolved]
